FAERS Safety Report 6464356-0 (Version None)
Quarter: 2009Q4

REPORT INFORMATION
  Report Type: 
  Country: None (occurrence: None)
  Receive Date: 20091201
  Receipt Date: 20091118
  Transmission Date: 20100525
  Serious: Yes (Life-Threatening)
  Sender: FDA-Public Use
  Company Number: IT-ELI_LILLY_AND_COMPANY-IT200911004589

PATIENT
  Sex: Female

DRUGS (3)
  1. ZYPREXA [Suspect]
     Indication: DEMENTIA ALZHEIMER'S TYPE
     Dosage: 1 D/F, DAILY (1/D)
     Route: 048
     Dates: start: 20091110, end: 20091114
  2. SOLOSA [Concomitant]
     Dosage: UNK, UNK
     Dates: start: 20090701, end: 20090101
  3. LORAZEPAM [Concomitant]

REACTIONS (2)
  - EPILEPSY [None]
  - OFF LABEL USE [None]
